FAERS Safety Report 14261697 (Version 1)
Quarter: 2017Q4

REPORT INFORMATION
  Report Type: Spontaneous
  Country: US (occurrence: US)
  Receive Date: 20171208
  Receipt Date: 20171208
  Transmission Date: 20180321
  Serious: Yes (Other)
  Sender: FDA-Public Use
  Company Number: US-WEST-WARD PHARMACEUTICALS CORP.-US-H14001-17-04628

PATIENT
  Sex: Male
  Weight: 83 kg

DRUGS (3)
  1. ALPRAZOLAM. [Concomitant]
     Active Substance: ALPRAZOLAM
     Indication: SLEEP DISORDER
     Route: 065
  2. BUPRENORPHINE. [Suspect]
     Active Substance: BUPRENORPHINE
     Indication: DRUG DEPENDENCE
     Route: 060
     Dates: start: 20150821
  3. BUPRENORPHINE. [Suspect]
     Active Substance: BUPRENORPHINE
     Route: 060
     Dates: start: 20150821

REACTIONS (15)
  - Withdrawal syndrome [Unknown]
  - Anxiety [Unknown]
  - Dizziness [Unknown]
  - Hyperhidrosis [Unknown]
  - Tremor [Not Recovered/Not Resolved]
  - Therapy cessation [Recovered/Resolved]
  - Intentional product use issue [Recovered/Resolved]
  - Rhinorrhoea [Not Recovered/Not Resolved]
  - Circulatory collapse [Unknown]
  - Influenza like illness [Unknown]
  - Chills [Not Recovered/Not Resolved]
  - Insomnia [Unknown]
  - Pain [Not Recovered/Not Resolved]
  - Feeling cold [Not Recovered/Not Resolved]
  - Blood cholesterol increased [Unknown]

NARRATIVE: CASE EVENT DATE: 2017
